FAERS Safety Report 14026742 (Version 3)
Quarter: 2017Q4

REPORT INFORMATION
  Report Type: Spontaneous
  Country: CO (occurrence: CO)
  Receive Date: 20170929
  Receipt Date: 20171104
  Transmission Date: 20180321
  Serious: Yes (Other)
  Sender: FDA-Public Use
  Company Number: CO-AUROBINDO-AUR-APL-2017-40949

PATIENT
  Age: 50 Year
  Sex: Male

DRUGS (4)
  1. ALPRAZOLAM. [Concomitant]
     Active Substance: ALPRAZOLAM
     Indication: EMBOLISM
     Dosage: 0.25 MG, DAILY
     Route: 048
     Dates: start: 20170825, end: 20170915
  2. NOREPINEPHRINE. [Concomitant]
     Active Substance: NOREPINEPHRINE
     Indication: HAEMODYNAMIC INSTABILITY
     Dosage: 0.03-3 MCG/KG/MIN PER DAY
     Route: 042
     Dates: start: 20170801, end: 20170801
  3. PIPERACILLIN AND TAZOBACTAM [Suspect]
     Active Substance: PIPERACILLIN SODIUM\TAZOBACTAM SODIUM
     Indication: BACTERAEMIA
     Dosage: 4.5 G, 4 PER DAY
     Route: 042
     Dates: start: 20170826, end: 20170905
  4. FLUOXETINE [Concomitant]
     Active Substance: FLUOXETINE HYDROCHLORIDE
     Indication: EMBOLISM
     Dosage: 20 MG, DAILY
     Route: 048
     Dates: start: 20170803, end: 20170917

REACTIONS (1)
  - Treatment failure [Recovered/Resolved]

NARRATIVE: CASE EVENT DATE: 20170826
